FAERS Safety Report 18557415 (Version 1)
Quarter: 2020Q4

REPORT INFORMATION
  Report Type: Spontaneous
  Country: BG (occurrence: BG)
  Receive Date: 20201129
  Receipt Date: 20201129
  Transmission Date: 20210114
  Serious: Yes (Other)
  Sender: FDA-Public Use
  Company Number: BG-ROCHE-2717136

PATIENT
  Age: 67 Year
  Sex: Female

DRUGS (3)
  1. ROACTEMRA [Suspect]
     Active Substance: TOCILIZUMAB
     Indication: COVID-19
     Dosage: DOSE, UNIT, ROUTE, FREQUENCY AND STOP DATE WERE UNKNOWN
     Route: 065
     Dates: start: 20201103
  2. DEXAMETHASONE. [Concomitant]
     Active Substance: DEXAMETHASONE
     Indication: COVID-19
     Dosage: UNKNOWN DOSAGE, UNIT, ROUTE, FREQUENCY, START AND STOP DATES
  3. AMANTADIN [Concomitant]
     Active Substance: AMANTADINE
     Indication: COVID-19
     Dosage: UNKNOWN DOSAGE, UNIT, ROUTE, FREQUENCY AND STOP DATE
     Dates: start: 20201105

REACTIONS (3)
  - COVID-19 [Unknown]
  - Off label use [Unknown]
  - Intentional product use issue [Unknown]

NARRATIVE: CASE EVENT DATE: 20201103
